FAERS Safety Report 16319505 (Version 1)
Quarter: 2019Q2

REPORT INFORMATION
  Report Type: Spontaneous
  Country: US (occurrence: US)
  Receive Date: 20190515
  Receipt Date: 20190515
  Transmission Date: 20190711
  Serious: Yes (Life-Threatening)
  Sender: FDA-Public Use
  Company Number: None

PATIENT
  Age: 82 Year
  Sex: Male

DRUGS (3)
  1. DIPHENHYDRAMINE 25MG [Concomitant]
     Active Substance: DIPHENHYDRAMINE
     Dates: start: 20190408, end: 20190408
  2. CETUXIMAB. [Suspect]
     Active Substance: CETUXIMAB
     Indication: THROAT CANCER
  3. ACETAMINOPHEN 500MG [Concomitant]
     Active Substance: ACETAMINOPHEN
     Dates: start: 20190408, end: 20190408

REACTIONS (4)
  - Rash generalised [None]
  - Anaphylactic reaction [None]
  - Syncope [None]
  - Cardiac arrest [None]

NARRATIVE: CASE EVENT DATE: 20190408
